FAERS Safety Report 7213842-4 (Version None)
Quarter: 2011Q1

REPORT INFORMATION
  Report Type: 
  Country: None (occurrence: None)
  Receive Date: 20110106
  Receipt Date: 20101227
  Transmission Date: 20110831
  Serious: Yes (Other)
  Sender: FDA-Public Use
  Company Number: PHHY2009DE54063

PATIENT
  Sex: Male

DRUGS (1)
  1. GLEEVEC [Suspect]
     Indication: LEUKAEMIA
     Dosage: 400 MG/DAY
     Route: 048
     Dates: start: 20090901

REACTIONS (3)
  - DRY EYE [None]
  - SUICIDAL IDEATION [None]
  - ARTHRALGIA [None]
